FAERS Safety Report 6935820-2 (Version None)
Quarter: 2010Q3

REPORT INFORMATION
  Report Type: 
  Country: None (occurrence: None)
  Receive Date: 20100823
  Receipt Date: 20100810
  Transmission Date: 20110219
  Serious: Yes (Other)
  Sender: FDA-Public Use
  Company Number: PHFR2010GB01381

PATIENT
  Sex: Female

DRUGS (4)
  1. CLOZARIL [Suspect]
     Indication: SCHIZOPHRENIA
     Dosage: 250MG/DAY
     Route: 048
     Dates: start: 20100618
  2. CLOZARIL [Suspect]
     Indication: SCHIZOPHRENIA, DISORGANISED TYPE
     Dosage: 100MG/DAY
     Route: 048
     Dates: start: 20100728
  3. CLOZARIL [Suspect]
     Dosage: 112.5MG/DAY
     Route: 048
     Dates: start: 20100805
  4. OLANZAPINE [Concomitant]
     Dosage: UNK
     Route: 048
     Dates: start: 20100717

REACTIONS (3)
  - HEART RATE INCREASED [None]
  - RED BLOOD CELL SEDIMENTATION RATE INCREASED [None]
  - SINUS TACHYCARDIA [None]
